FAERS Safety Report 8965237 (Version 1)
Quarter: 2012Q4

REPORT INFORMATION
  Report Type: 
  Country: US (occurrence: US)
  Receive Date: 20121213
  Receipt Date: 20121213
  Transmission Date: 20130627
  Serious: No
  Sender: FDA-Public Use
  Company Number: US-BRISTOL-MYERS SQUIBB COMPANY-16938086

PATIENT
  Age: 56 Year
  Sex: Female
  Weight: 97 kg

DRUGS (1)
  1. IXEMPRA [Suspect]
     Indication: BREAST CANCER METASTATIC
     Dosage: Last dose on 4Sep2012
No of doses:7
     Route: 042
     Dates: start: 20120306

REACTIONS (3)
  - Pain [Unknown]
  - Weight increased [Unknown]
  - Neutropenia [Unknown]
